FAERS Safety Report 9546572 (Version 1)
Quarter: 2013Q3

REPORT INFORMATION
  Report Type: Report from Study
  Country: DE (occurrence: DE)
  Receive Date: 20130924
  Receipt Date: 20130924
  Transmission Date: 20140515
  Serious: Yes (Hospitalization)
  Sender: FDA-Public Use
  Company Number: DE-ROCHE-1277463

PATIENT
  Age: 38 Year
  Sex: Male

DRUGS (1)
  1. PEG-INTERFERON ALFA 2A [Suspect]
     Indication: MALIGNANT MELANOMA
     Route: 058

REACTIONS (4)
  - Somatisation disorder [Recovered/Resolved]
  - Monoparesis [Recovered/Resolved]
  - Speech disorder [Recovered/Resolved]
  - Tremor [Not Recovered/Not Resolved]
